FAERS Safety Report 5143271-9 (Version None)
Quarter: 2006Q4

REPORT INFORMATION
  Report Type: 
  Country: None (occurrence: None)
  Receive Date: 20061103
  Receipt Date: 20060818
  Transmission Date: 20070319
  Serious: Yes (Hospitalization)
  Sender: FDA-Public Use
  Company Number: AU-ROCHE-459921

PATIENT
  Age: 47 Year
  Sex: Male

DRUGS (2)
  1. MYCOPHENOLATE MOFETIL [Suspect]
     Route: 048
     Dates: start: 20060217
  2. FK506 [Suspect]
     Route: 048
     Dates: start: 20060115

REACTIONS (2)
  - DIVERTICULUM [None]
  - INTESTINAL POLYP [None]
